FAERS Safety Report 9961169 (Version 1)
Quarter: 2014Q1

REPORT INFORMATION
  Report Type: Spontaneous
  Country: US (occurrence: None)
  Receive Date: 20140127
  Receipt Date: 20140127
  Transmission Date: 20141002
  Serious: Yes (Hospitalization)
  Sender: FDA-Public Use
  Company Number: 1209806

PATIENT
  Age: 8 Day
  Sex: Male
  Weight: 2.9 kg

DRUGS (2)
  1. ALTEPLASE [Suspect]
     Indication: URINARY BLADDER HAEMORRHAGE
     Route: 040
  2. HEPARIN (HEPARIN SODIUM) (INFUSION) [Concomitant]

REACTIONS (1)
  - Vessel puncture site haemorrhage [None]
